FAERS Safety Report 6531818-7 (Version None)
Quarter: 2010Q1

REPORT INFORMATION
  Report Type: 
  Country: None (occurrence: None)
  Receive Date: 20100107
  Receipt Date: 20100107
  Transmission Date: 20100710
  Serious: Yes (Other)
  Sender: FDA-Public Use
  Company Number: None

PATIENT
  Sex: Male
  Weight: 90.7 kg

DRUGS (4)
  1. HEPARIN [Suspect]
     Indication: ANTICOAGULANT THERAPY
     Dosage: 6,000 UNITS ONCE IV BOLUS
     Route: 040
     Dates: start: 20091201, end: 20091221
  2. DIPHENHYDRAMINE [Concomitant]
  3. FENTANYL-100 [Concomitant]
  4. VERSED [Concomitant]

REACTIONS (1)
  - NO ADVERSE EVENT [None]
